FAERS Safety Report 8816594 (Version 1)
Quarter: 2012Q4

REPORT INFORMATION
  Report Type: Spontaneous
  Country: SE (occurrence: None)
  Receive Date: 20120929
  Receipt Date: 20120929
  Transmission Date: 20130627
  Serious: Yes (Hospitalization)
  Sender: FDA-Public Use
  Company Number: UTC-023290

PATIENT
  Sex: Male

DRUGS (1)
  1. REMODULIN [Suspect]
     Route: 058

REACTIONS (2)
  - Abdominal distension [None]
  - Intra-abdominal haemorrhage [None]
